FAERS Safety Report 20000825 (Version 1)
Quarter: 2021Q4

REPORT INFORMATION
  Report Type: Spontaneous
  Country: US (occurrence: US)
  Receive Date: 20211026
  Receipt Date: 20211026
  Transmission Date: 20220303
  Serious: Yes (Other)
  Sender: FDA-Public Use
  Company Number: None

PATIENT

DRUGS (4)
  1. DEXTROAMPHET SACCHARAT, AMPHET ASPARTATE, DEXTROAMPHET SULFATE AND AMP [Suspect]
     Active Substance: AMPHETAMINE ASPARTATE\AMPHETAMINE SULFATE\DEXTROAMPHETAMINE SACCHARATE\DEXTROAMPHETAMINE SULFATE
     Indication: Attention deficit hyperactivity disorder
     Dosage: ?          OTHER FREQUENCY:TAKE 2 CAPSULES DA;
     Route: 048
     Dates: start: 20210927, end: 20211026
  2. DEXTROAMPHET SACCHARAT, AMPHET ASPARTATE, DEXTROAMPHET SULFATE AND AMP [Suspect]
     Active Substance: AMPHETAMINE ASPARTATE\AMPHETAMINE SULFATE\DEXTROAMPHETAMINE SACCHARATE\DEXTROAMPHETAMINE SULFATE
     Indication: Attention deficit hyperactivity disorder
     Route: 048
     Dates: start: 20210927, end: 20211026
  3. GENERIC ADDERALL XR 40MG [Concomitant]
     Dates: start: 20180101, end: 20180301
  4. AMPHETAMINE-DEXTROAMPHETAMINE IR 10 MG [Concomitant]
     Dates: start: 20120501, end: 20200930

REACTIONS (4)
  - Vision blurred [None]
  - Confusional state [None]
  - Lethargy [None]
  - Drug ineffective [None]

NARRATIVE: CASE EVENT DATE: 20210927
